FAERS Safety Report 5966250-8 (Version None)
Quarter: 2008Q4

REPORT INFORMATION
  Report Type: 
  Country: None (occurrence: None)
  Receive Date: 20081125
  Receipt Date: 20081121
  Transmission Date: 20090506
  Serious: Yes (Death, Hospitalization)
  Sender: FDA-Public Use
  Company Number: CH-TEVA-180365ISR

PATIENT
  Age: 68 Year
  Sex: Female

DRUGS (9)
  1. FLUOROURACIL [Suspect]
     Indication: CARCINOMA IN SITU
     Route: 041
     Dates: start: 20071201, end: 20080201
  2. IRINOTECAN HYDROCHLORIDE [Suspect]
     Indication: CARCINOMA IN SITU
     Route: 041
     Dates: start: 20071201, end: 20080201
  3. BEVACIZUMAB [Suspect]
     Indication: CARCINOMA IN SITU
     Route: 041
     Dates: start: 20071201
  4. PREDNISONE TAB [Concomitant]
     Route: 048
  5. SIMVASTATIN [Concomitant]
     Route: 048
  6. ESOMEPRAZOLE MAGNESIUM [Concomitant]
     Route: 048
  7. THIAMINE HCL [Concomitant]
     Route: 048
  8. LEKOVIT CA [Concomitant]
     Route: 048
  9. INSULIN [Concomitant]
     Indication: TYPE 1 DIABETES MELLITUS
     Route: 058

REACTIONS (2)
  - ACUTE CORONARY SYNDROME [None]
  - CARDIOMYOPATHY [None]
